FAERS Safety Report 4678160-7 (Version None)
Quarter: 2005Q2

REPORT INFORMATION
  Report Type: 
  Country: None (occurrence: None)
  Receive Date: 20050527
  Receipt Date: 20050517
  Transmission Date: 20051028
  Serious: Yes (Other)
  Sender: FDA-Public Use
  Company Number: 2005076798

PATIENT
  Age: 94 Year
  Sex: Female

DRUGS (9)
  1. NORVASC [Suspect]
     Indication: HYPERTENSION
     Dosage: 2.5 MG (DAILY), ORAL
     Route: 048
     Dates: start: 20041001, end: 20050507
  2. NU LOTAN (LOSARTAN POTASSIUM) [Concomitant]
  3. COVERSYL (PERINDOPRIL) [Concomitant]
  4. BASEN (VOGLIBOSE) [Concomitant]
  5. STARSIS (NATEGLINIDE) [Concomitant]
  6. EUGLUCON (GLIBENCLAMIDE) [Concomitant]
  7. LANIRAPID (METILDIGOXIN) [Concomitant]
  8. MILLISROL (GLYCERYL TRINITRATE) [Concomitant]
  9. ISOSORBIDE DINITRATE [Concomitant]

REACTIONS (3)
  - ATRIOVENTRICULAR BLOCK COMPLETE [None]
  - BLOOD PRESSURE SYSTOLIC INCREASED [None]
  - HEART RATE DECREASED [None]
